FAERS Safety Report 5222640-2 (Version None)
Quarter: 2007Q1

REPORT INFORMATION
  Report Type: 
  Country: None (occurrence: None)
  Receive Date: 20070124
  Receipt Date: 20070119
  Transmission Date: 20070707
  Serious: Yes (Life-Threatening, Hospitalization)
  Sender: FDA-Public Use
  Company Number: HQWYE376215JAN07

PATIENT
  Age: 72 Year
  Sex: Male
  Weight: 86.26 kg

DRUGS (10)
  1. MYLOTARG [Suspect]
     Indication: MYELODYSPLASTIC SYNDROME
     Dosage: 6 MG 1X PER 1 DAY, INTRAVENOUS
     Route: 042
     Dates: start: 20070109, end: 20070109
  2. TRISENOX [Suspect]
     Dosage: 21.5  MG 1X PER 1 DAY, INTRAVENOUS
     Route: 042
     Dates: start: 20070102, end: 20070106
  3. LIPITOR [Concomitant]
  4. PRINIVIL [Concomitant]
  5. PRILOSEC [Concomitant]
  6. IMDUR [Concomitant]
  7. ATIVAN [Concomitant]
  8. ZOLOFT [Concomitant]
  9. LOPRESSOR [Concomitant]
  10. NITROSTAT (GLYCERYYL TRINITRATE) [Concomitant]

REACTIONS (20)
  - AORTIC ARTERIOSCLEROSIS [None]
  - AORTIC CALCIFICATION [None]
  - BLOOD MAGNESIUM INCREASED [None]
  - BLOOD PHOSPHORUS DECREASED [None]
  - BLOOD THYROID STIMULATING HORMONE INCREASED [None]
  - BODY TEMPERATURE INCREASED [None]
  - CORONARY ARTERY DISEASE [None]
  - EJECTION FRACTION DECREASED [None]
  - HAEMATOCRIT DECREASED [None]
  - HAEMOGLOBIN DECREASED [None]
  - INTERSTITIAL LUNG DISEASE [None]
  - MYOCARDIAL INFARCTION [None]
  - MYOCARDIAL ISCHAEMIA [None]
  - OEDEMA [None]
  - PLATELET COUNT DECREASED [None]
  - PNEUMONIA PRIMARY ATYPICAL [None]
  - PNEUMONIA VIRAL [None]
  - PROCEDURAL COMPLICATION [None]
  - PULMONARY HYPERTENSION [None]
  - VENTRICULAR EXTRASYSTOLES [None]
